FAERS Safety Report 15929773 (Version 1)
Quarter: 2019Q1

REPORT INFORMATION
  Report Type: Report from Study
  Country: GB (occurrence: GB)
  Receive Date: 20190206
  Receipt Date: 20190206
  Transmission Date: 20190417
  Serious: Yes (Other)
  Sender: FDA-Public Use
  Company Number: PHHY2019GB025370

PATIENT
  Sex: Female

DRUGS (1)
  1. COSENTYX [Suspect]
     Active Substance: SECUKINUMAB
     Indication: PSORIATIC ARTHROPATHY
     Dosage: 150 MG, (WEEK 0- WEEK 4, 150MG. THEREAFTER, 150MG, MONTHLY)
     Route: 058
     Dates: start: 201811

REACTIONS (4)
  - Arthralgia [Unknown]
  - Lower respiratory tract infection [Recovering/Resolving]
  - Viral infection [Recovering/Resolving]
  - Asthma [Unknown]
